FAERS Safety Report 12136425 (Version 4)
Quarter: 2016Q3

REPORT INFORMATION
  Report Type: Spontaneous
  Country: US (occurrence: US)
  Receive Date: 20160302
  Receipt Date: 20160711
  Transmission Date: 20161109
  Serious: Yes (Other)
  Sender: FDA-Public Use
  Company Number: US-PFIZER INC-2016015408

PATIENT
  Age: 31 Year
  Sex: Female
  Weight: 79 kg

DRUGS (1)
  1. LYRICA [Suspect]
     Active Substance: PREGABALIN
     Dosage: 225 MG, UNK

REACTIONS (3)
  - Withdrawal syndrome [Unknown]
  - Bronchitis [Unknown]
  - Pain [Unknown]
